FAERS Safety Report 4408372-9 (Version None)
Quarter: 2004Q3

REPORT INFORMATION
  Report Type: 
  Country: None (occurrence: None)
  Receive Date: 20040726
  Receipt Date: 20040726
  Transmission Date: 20050211
  Serious: Yes (Disabling)
  Sender: FDA-Public Use
  Company Number: None

PATIENT
  Sex: Female

DRUGS (3)
  1. CONCERTA [Suspect]
     Indication: CHRONIC FATIGUE SYNDROME
     Dosage: 18MG QAM
  2. CONCERTA [Suspect]
     Indication: DEPRESSION
     Dosage: 18MG QAM
  3. CONCERTA [Suspect]
     Indication: NARCOLEPSY
     Dosage: 18MG QAM

REACTIONS (1)
  - UNEVALUABLE EVENT [None]
